FAERS Safety Report 22065655 (Version 2)
Quarter: 2023Q2

REPORT INFORMATION
  Report Type: Report from Study
  Country: US (occurrence: US)
  Receive Date: 20230306
  Receipt Date: 20230405
  Transmission Date: 20230722
  Serious: Yes (Other)
  Sender: FDA-Public Use
  Company Number: US-ABBVIE-20K-163-3611379-00

PATIENT
  Age: 64 Year
  Sex: Female

DRUGS (4)
  1. HUMIRA [Suspect]
     Active Substance: ADALIMUMAB
     Indication: Crohn^s disease
     Dosage: CITRATE FREE
     Route: 058
  2. HUMIRA [Suspect]
     Active Substance: ADALIMUMAB
     Dosage: CITRATE FREE
     Route: 058
     Dates: start: 20180402
  3. HUMIRA [Suspect]
     Active Substance: ADALIMUMAB
     Dosage: CITRATE FREE
     Route: 058
  4. HUMIRA [Suspect]
     Active Substance: ADALIMUMAB
     Dosage: CITRATE FREE
     Route: 058

REACTIONS (18)
  - Surgery [Unknown]
  - Abdominal distension [Not Recovered/Not Resolved]
  - Supraventricular tachycardia [Unknown]
  - Tachycardia [Unknown]
  - Colostomy [Unknown]
  - Osteoporosis [Not Recovered/Not Resolved]
  - Compression fracture [Unknown]
  - Procedural pain [Unknown]
  - Arteriospasm coronary [Unknown]
  - Cardiovascular insufficiency [Not Recovered/Not Resolved]
  - Irritable bowel syndrome [Unknown]
  - Cardiac murmur [Unknown]
  - Post procedural complication [Not Recovered/Not Resolved]
  - Cardiac valve disease [Unknown]
  - Scoliosis [Not Recovered/Not Resolved]
  - Therapeutic nerve ablation [Unknown]
  - Abdominal rigidity [Unknown]
  - Back pain [Not Recovered/Not Resolved]

NARRATIVE: CASE EVENT DATE: 20230227
